FAERS Safety Report 21199138 (Version 5)
Quarter: 2022Q4

REPORT INFORMATION
  Report Type: Report from Study
  Country: IL (occurrence: IL)
  Receive Date: 20220811
  Receipt Date: 20221013
  Transmission Date: 20230113
  Serious: Yes (Death, Hospitalization, Other)
  Sender: FDA-Public Use
  Company Number: IL-NOVARTISPH-NVSC2022IL179294

PATIENT
  Age: 35 Year
  Sex: Female

DRUGS (1)
  1. TRAMETINIB [Suspect]
     Active Substance: TRAMETINIB
     Indication: Ovarian cancer
     Dosage: 2 MG
     Route: 048
     Dates: start: 20220608

REACTIONS (13)
  - Ovarian cancer [Fatal]
  - Malignant neoplasm progression [Fatal]
  - Metastases to peritoneum [Fatal]
  - Intestinal obstruction [Fatal]
  - General physical health deterioration [Fatal]
  - Intestinal perforation [Fatal]
  - Sepsis [Fatal]
  - Abdominal distension [Unknown]
  - Abdominal pain [Unknown]
  - Vomiting [Unknown]
  - Hypovolaemic shock [Unknown]
  - Peritonitis [Unknown]
  - Acute abdomen [Unknown]

NARRATIVE: CASE EVENT DATE: 20220628
